FAERS Safety Report 8614317-8 (Version None)
Quarter: 2012Q3

REPORT INFORMATION
  Report Type: 
  Country: None (occurrence: None)
  Receive Date: 20120823
  Receipt Date: 20120816
  Transmission Date: 20120928
  Serious: Yes (Hospitalization)
  Sender: FDA-Public Use
  Company Number: AU-AMGEN-AUSSP2012052347

PATIENT
  Age: 47 Year
  Sex: Female

DRUGS (3)
  1. CYCLOPHOSPHAMIDE [Concomitant]
  2. NEULASTA [Suspect]
     Indication: CHEMOTHERAPY
  3. DOCETAXEL [Concomitant]

REACTIONS (4)
  - ABDOMINAL PAIN [None]
  - MUSCLE SPASMS [None]
  - NEUTROPENIA [None]
  - BONE PAIN [None]
